FAERS Safety Report 15074656 (Version 1)
Quarter: 2018Q2

REPORT INFORMATION
  Report Type: Report from Study
  Country: US (occurrence: US)
  Receive Date: 20180627
  Receipt Date: 20180627
  Transmission Date: 20180711
  Serious: No
  Sender: FDA-Public Use
  Company Number: US-SAOL THERAPEUTICS-2017SAO01101

PATIENT
  Age: 67 Year
  Sex: Female

DRUGS (16)
  1. COMPOUNDED BACLOFEN [Suspect]
     Active Substance: BACLOFEN
     Dosage: 132.46 ?G, \DAY
     Route: 037
     Dates: start: 20141028, end: 20141029
  2. CLONIDINE. [Suspect]
     Active Substance: CLONIDINE
     Dosage: 132.46 ?G, \DAY
     Route: 037
     Dates: start: 20141028, end: 20141029
  3. DILAUDID [Suspect]
     Active Substance: HYDROMORPHONE HYDROCHLORIDE
     Dosage: 2.9771 MG, \DAY
     Dates: start: 20141029
  4. COMPOUNDED BACLOFEN [Suspect]
     Active Substance: BACLOFEN
     Dosage: 201.58 ?G, \DAY
     Dates: start: 20141028, end: 20141029
  5. DILAUDID [Suspect]
     Active Substance: HYDROMORPHONE HYDROCHLORIDE
     Dosage: 2.6491 MG, \DAY
     Route: 037
     Dates: start: 20141028, end: 20141029
  6. DILAUDID [Suspect]
     Active Substance: HYDROMORPHONE HYDROCHLORIDE
     Dosage: 2.2022 MG, \DAY
     Route: 037
     Dates: start: 20141029
  7. BUPIVACAINE. [Suspect]
     Active Substance: BUPIVACAINE
     Dosage: 22.022 MG, \DAY
     Route: 037
     Dates: start: 20141029
  8. BUPIVACAINE. [Suspect]
     Active Substance: BUPIVACAINE
     Dosage: 26.491 MG, \DAY
     Route: 037
     Dates: start: 20141028, end: 20141029
  9. CLONIDINE. [Suspect]
     Active Substance: CLONIDINE
     Dosage: 110.11 ?G, \DAY
     Route: 037
     Dates: start: 20141029
  10. COMPOUNDED BACLOFEN [Suspect]
     Active Substance: BACLOFEN
     Dosage: 110.11 ?G, \DAY
     Route: 037
     Dates: start: 20141029
  11. COMPOUNDED BACLOFEN [Suspect]
     Active Substance: BACLOFEN
     Dosage: 148.86 ?G, \DAY
     Dates: start: 20141029
  12. CLONIDINE. [Suspect]
     Active Substance: CLONIDINE
     Dosage: 148.86 ?G, \DAY
     Dates: start: 20141029
  13. DILAUDID [Suspect]
     Active Substance: HYDROMORPHONE HYDROCHLORIDE
     Dosage: 4.0317 MG, \DAY
     Dates: start: 20141028, end: 20141029
  14. BUPIVACAINE. [Suspect]
     Active Substance: BUPIVACAINE
     Dosage: 40.317 MG, \DAY
     Dates: start: 20141028, end: 20141029
  15. BUPIVACAINE. [Suspect]
     Active Substance: BUPIVACAINE
     Dosage: 29.771 MG, \DAY
     Dates: start: 20141029
  16. CLONIDINE. [Suspect]
     Active Substance: CLONIDINE
     Dosage: 201.58 ?G, \DAY
     Dates: start: 20141028, end: 20141029

REACTIONS (2)
  - Nausea [Recovered/Resolved]
  - Vomiting [Recovered/Resolved]

NARRATIVE: CASE EVENT DATE: 20141029
